FAERS Safety Report 6006563-7 (Version None)
Quarter: 2008Q4

REPORT INFORMATION
  Report Type: 
  Country: None (occurrence: None)
  Receive Date: 20081217
  Receipt Date: 20081210
  Transmission Date: 20090506
  Serious: Yes (Other)
  Sender: FDA-Public Use
  Company Number: JP-PFIZER INC-2008150710

PATIENT

DRUGS (4)
  1. SOLANAX [Suspect]
     Dosage: 1.6 MG/ML, 1X/DAY
     Route: 048
  2. ALL OTHER THERAPEUTIC PRODUCTS [Concomitant]
  3. TOLEDOMIN [Concomitant]
     Dosage: UNK
     Route: 048
  4. BENZALIN [Concomitant]
     Dosage: UNK
     Route: 048

REACTIONS (1)
  - VISUAL ACUITY REDUCED [None]
